FAERS Safety Report 15147391 (Version 1)
Quarter: 2018Q3

REPORT INFORMATION
  Report Type: Spontaneous
  Country: FR (occurrence: FR)
  Receive Date: 20180716
  Receipt Date: 20180716
  Transmission Date: 20181010
  Serious: Yes (Death, Hospitalization, Other)
  Sender: FDA-Public Use
  Company Number: FR-ACCORD-069547

PATIENT
  Age: 53 Year
  Sex: Female

DRUGS (4)
  1. BASILIXIMAB [Suspect]
     Active Substance: BASILIXIMAB
     Indication: IMMUNOSUPPRESSANT DRUG THERAPY
  2. PREDNISOLONE. [Suspect]
     Active Substance: PREDNISOLONE
     Indication: IMMUNOSUPPRESSANT DRUG THERAPY
     Dosage: REDUCED TO 10 MG/DAY
  3. CICLOSPORIN [Suspect]
     Active Substance: CYCLOSPORINE
     Indication: IMMUNOSUPPRESSANT DRUG THERAPY
     Dosage: REDUCED TO 300?400 MG/DAY
  4. MYCOPHENOLIC ACID. [Suspect]
     Active Substance: MYCOPHENOLIC ACID
     Indication: IMMUNOSUPPRESSANT DRUG THERAPY
     Dosage: 500 MG/DAY

REACTIONS (7)
  - Multiple organ dysfunction syndrome [Fatal]
  - Encephalopathy [Unknown]
  - Human herpesvirus 6 infection [Fatal]
  - Septic shock [Unknown]
  - Herpes simplex viraemia [Unknown]
  - Epstein-Barr viraemia [Unknown]
  - Diarrhoea [Unknown]
